FAERS Safety Report 7981297-8 (Version None)
Quarter: 2011Q4

REPORT INFORMATION
  Report Type: 
  Country: None (occurrence: None)
  Receive Date: 20111215
  Receipt Date: 20111213
  Transmission Date: 20120403
  Serious: No
  Sender: FDA-Public Use
  Company Number: US-PFIZER INC-2011303323

PATIENT
  Sex: Male
  Weight: 76 kg

DRUGS (3)
  1. HUMIRA [Suspect]
     Indication: RHEUMATOID ARTHRITIS
     Dosage: 40 MG/ 0.8 ML PEN
     Route: 058
     Dates: start: 20110725
  2. LYRICA [Suspect]
     Indication: RHEUMATOID ARTHRITIS
     Dosage: UNK
     Dates: start: 20111109
  3. OXYGEN [Concomitant]
     Indication: SLEEP APNOEA SYNDROME
     Dosage: UNK

REACTIONS (1)
  - INJECTION SITE HAEMATOMA [None]
